FAERS Safety Report 25267418 (Version 1)
Quarter: 2025Q2

REPORT INFORMATION
  Report Type: Report from Study
  Country: US (occurrence: US)
  Receive Date: 20250505
  Receipt Date: 20250505
  Transmission Date: 20250717
  Serious: Yes (Other)
  Sender: ALEXION PHARMACEUTICALS
  Company Number: US-ASTRAZENECA-202504USA027847US

PATIENT
  Age: 11 Year

DRUGS (2)
  1. STRENSIQ [Suspect]
     Active Substance: ASFOTASE ALFA
     Indication: Phosphorus metabolism disorder
     Route: 065
  2. STRENSIQ [Suspect]
     Active Substance: ASFOTASE ALFA
     Route: 065

REACTIONS (5)
  - Intracranial pressure increased [Unknown]
  - Carbon dioxide increased [Unknown]
  - Blood bilirubin increased [Unknown]
  - Injection site bruising [Unknown]
  - Joint contracture [Unknown]
